FAERS Safety Report 9408940 (Version 1)
Quarter: 2013Q3

REPORT INFORMATION
  Report Type: Spontaneous
  Country: US (occurrence: US)
  Receive Date: 20130719
  Receipt Date: 20130719
  Transmission Date: 20140515
  Serious: Yes (Other)
  Sender: FDA-Public Use
  Company Number: US-BRISTOL-MYERS SQUIBB COMPANY-19120955

PATIENT
  Age: 72 Year
  Sex: Female
  Weight: 108.84 kg

DRUGS (9)
  1. WARFARIN SODIUM [Suspect]
     Dosage: 1DF: 7.5-8MG
  2. TIKOSYN [Concomitant]
  3. DIOVAN [Concomitant]
  4. LIPITOR [Concomitant]
  5. MAGNESIUM OXIDE [Concomitant]
  6. SPIRONOLACTONE [Concomitant]
  7. FOLIC ACID [Concomitant]
     Dosage: 1DF:1 TABS
  8. PATANASE [Concomitant]
  9. FLUTICASONE [Concomitant]

REACTIONS (1)
  - Atrial fibrillation [Unknown]
